FAERS Safety Report 22282094 (Version 1)
Quarter: 2023Q2

REPORT INFORMATION
  Report Type: Report from Study
  Country: US (occurrence: None)
  Receive Date: 20230504
  Receipt Date: 20230504
  Transmission Date: 20230721
  Serious: Yes (Hospitalization)
  Sender: FDA-Public Use
  Company Number: US-Merck Healthcare KGaA-9399586

PATIENT
  Sex: Male

DRUGS (2)
  1. REBIF [Suspect]
     Active Substance: INTERFERON BETA-1A
     Indication: Multiple sclerosis
     Route: 058
     Dates: start: 20040119
  2. IBUPROFEN [Suspect]
     Active Substance: IBUPROFEN
     Indication: Influenza like illness

REACTIONS (2)
  - Rectal haemorrhage [Recovered/Resolved]
  - Abdominal discomfort [Unknown]
